FAERS Safety Report 8455708-8 (Version None)
Quarter: 2012Q2

REPORT INFORMATION
  Report Type: 
  Country: None (occurrence: None)
  Receive Date: 20120621
  Receipt Date: 20120615
  Transmission Date: 20120825
  Serious: No
  Sender: FDA-Public Use
  Company Number: US-B.I. PHARMACEUTICALS,INC./RIDGEFIELD-2012-BP-13812BP

PATIENT
  Sex: Male

DRUGS (5)
  1. POTASSIUM ACETATE [Concomitant]
     Indication: VITAMIN SUPPLEMENTATION
     Dosage: 10 MEQ
     Route: 048
     Dates: start: 20111101
  2. DILTIAZEM HYDROCHOLORIDE [Concomitant]
     Indication: HEART RATE INCREASED
     Route: 048
     Dates: start: 20111101
  3. PRADAXA [Suspect]
     Indication: ATRIAL FIBRILLATION
     Dosage: 300 MG
     Route: 048
     Dates: start: 20110101
  4. FLOMAX [Concomitant]
     Indication: PROSTATIC DISORDER
     Dates: start: 20020101
  5. LYRICA [Concomitant]
     Indication: NEUROPATHY PERIPHERAL
     Dates: start: 20100101

REACTIONS (3)
  - OEDEMA PERIPHERAL [None]
  - BACK PAIN [None]
  - ATRIAL FIBRILLATION [None]
